FAERS Safety Report 16201718 (Version 1)
Quarter: 2019Q2

REPORT INFORMATION
  Report Type: Spontaneous
  Country: CA (occurrence: CA)
  Receive Date: 20190416
  Receipt Date: 20190416
  Transmission Date: 20190711
  Serious: Yes (Hospitalization, Other)
  Sender: FDA-Public Use
  Company Number: CA-ALVOGEN-2019-ALVOGEN-099438

PATIENT
  Age: 47 Year
  Sex: Male

DRUGS (6)
  1. PREDNISONE. [Concomitant]
     Active Substance: PREDNISONE
     Indication: TYPE 1 LEPRA REACTION
     Route: 048
  2. RIFAMPICIN [Concomitant]
     Active Substance: RIFAMPIN
     Indication: TYPE 1 LEPRA REACTION
  3. OFLOXACIN. [Concomitant]
     Active Substance: OFLOXACIN
     Indication: TYPE 1 LEPRA REACTION
  4. CALCIUM CHLORIDE. [Concomitant]
     Active Substance: CALCIUM CHLORIDE
     Indication: TYPE 1 LEPRA REACTION
  5. DAPSONE. [Suspect]
     Active Substance: DAPSONE
     Indication: TYPE 1 LEPRA REACTION
  6. VITAMIN D NOS [Concomitant]
     Active Substance: VITAMIN D NOS
     Indication: TYPE 1 LEPRA REACTION

REACTIONS (1)
  - Drug reaction with eosinophilia and systemic symptoms [Recovered/Resolved]
